FAERS Safety Report 5516516-0 (Version None)
Quarter: 2007Q4

REPORT INFORMATION
  Report Type: 
  Country: None (occurrence: None)
  Receive Date: 20071114
  Receipt Date: 20070309
  Transmission Date: 20080405
  Serious: No
  Sender: FDA-Public Use
  Company Number: A0642408A

PATIENT
  Age: 49 Year
  Sex: Female

DRUGS (2)
  1. COMMIT [Suspect]
     Dates: start: 20070213
  2. COMMIT [Suspect]
     Dates: start: 20070213

REACTIONS (8)
  - BEDRIDDEN [None]
  - CHILLS [None]
  - COLD SWEAT [None]
  - DEPRESSED MOOD [None]
  - FEELING JITTERY [None]
  - HYPERHIDROSIS [None]
  - PALPITATIONS [None]
  - SPUTUM DISCOLOURED [None]
